FAERS Safety Report 8618998 (Version 8)
Quarter: 2014Q3

REPORT INFORMATION
  Report Type: Report from Study
  Country: CA (occurrence: CA)
  Receive Date: 20120618
  Receipt Date: 20140927
  Transmission Date: 20150326
  Serious: Yes (Death, Other)
  Sender: FDA-Public Use
  Company Number: PHHY2012CA051341

PATIENT
  Age: 52 Year
  Sex: Female

DRUGS (3)
  1. CLOZARIL [Suspect]
     Active Substance: CLOZAPINE
     Dosage: UKN
     Dates: start: 20140107
  2. LITHIUM [Concomitant]
     Active Substance: LITHIUM CARBONATE
     Dosage: UNK UKN, UNK
  3. CLOZARIL [Suspect]
     Active Substance: CLOZAPINE
     Indication: SCHIZOAFFECTIVE DISORDER
     Dosage: UKN
     Dates: start: 2003, end: 20130212

REACTIONS (16)
  - Abdominal mass [Unknown]
  - Pancytopenia [Unknown]
  - Anaemia [Unknown]
  - Glomerular filtration rate decreased [Unknown]
  - Drug level decreased [Unknown]
  - Leiomyosarcoma [Unknown]
  - Terminal state [Unknown]
  - Agranulocytosis [Unknown]
  - Lipase decreased [Unknown]
  - Renal mass [Unknown]
  - Uterine cancer [Unknown]
  - Blood creatinine increased [Unknown]
  - Mental disorder [Unknown]
  - Death [Fatal]
  - Neoplasm malignant [Unknown]
  - Pelvic mass [Unknown]

NARRATIVE: CASE EVENT DATE: 201302
